FAERS Safety Report 8020591-1 (Version None)
Quarter: 2012Q1

REPORT INFORMATION
  Report Type: 
  Country: None (occurrence: None)
  Receive Date: 20120103
  Receipt Date: 20111222
  Transmission Date: 20120608
  Serious: Yes (Hospitalization, Other)
  Sender: FDA-Public Use
  Company Number: US-ASTRAZENECA-2011SE31306

PATIENT
  Age: 54 Year
  Sex: Female
  Weight: 83.9 kg

DRUGS (7)
  1. SEROQUEL [Suspect]
     Route: 048
  2. SEROQUEL [Suspect]
     Route: 048
  3. TRAZADLE [Concomitant]
     Indication: SLEEP DISORDER
     Route: 048
  4. CLONAZEPAM [Concomitant]
     Indication: PANIC ATTACK
     Route: 048
  5. SEROQUEL [Suspect]
     Route: 048
  6. CRESTOR [Suspect]
     Route: 048
  7. SEROQUEL [Suspect]
     Indication: BIPOLAR DISORDER
     Route: 048
     Dates: start: 20090101

REACTIONS (8)
  - MENTAL DISORDER [None]
  - ACTIVITIES OF DAILY LIVING IMPAIRED [None]
  - VOMITING [None]
  - SUICIDAL IDEATION [None]
  - APHAGIA [None]
  - BIPOLAR DISORDER [None]
  - INSOMNIA [None]
  - DRUG DOSE OMISSION [None]
